FAERS Safety Report 11870908 (Version 1)
Quarter: 2015Q4

REPORT INFORMATION
  Report Type: Spontaneous
  Country: US (occurrence: None)
  Receive Date: 20151224
  Receipt Date: 20151224
  Transmission Date: 20160305
  Serious: No
  Sender: FDA-Public Use
  Company Number: None

PATIENT
  Age: 54 Year
  Sex: Female

DRUGS (11)
  1. FAMOTIDINE. [Concomitant]
     Active Substance: FAMOTIDINE
  2. GANCICLOVIR. [Concomitant]
     Active Substance: GANCICLOVIR
  3. NYSTATIN ORAL LIQUID [Concomitant]
     Active Substance: NYSTATIN
  4. CEFEPIME [Concomitant]
     Active Substance: CEFEPIME HYDROCHLORIDE
  5. ALBUMIN [Concomitant]
     Active Substance: ALBUMIN (HUMAN)
  6. FLUCONAZOLE. [Concomitant]
     Active Substance: FLUCONAZOLE
  7. TACROLIMUS. [Concomitant]
     Active Substance: TACROLIMUS
  8. HYDROMORPHONE [Suspect]
     Active Substance: HYDROMORPHONE
     Indication: PAIN
     Dosage: 0.2 MG CONTINUOUS PCA
     Dates: start: 20151018, end: 20151019
  9. DOCUSATE [Concomitant]
     Active Substance: DOCUSATE
  10. ATOVAQUONE. [Concomitant]
     Active Substance: ATOVAQUONE
  11. AZATHIOPRINE. [Concomitant]
     Active Substance: AZATHIOPRINE

REACTIONS (1)
  - Oxygen saturation decreased [None]

NARRATIVE: CASE EVENT DATE: 20151019
